FAERS Safety Report 14936968 (Version 1)
Quarter: 2018Q2

REPORT INFORMATION
  Report Type: Spontaneous
  Country: GB (occurrence: GB)
  Receive Date: 20180525
  Receipt Date: 20180525
  Transmission Date: 20180711
  Serious: Yes (Hospitalization, Disabling)
  Sender: FDA-Public Use
  Company Number: GB-TEVA-2018-GB-897520

PATIENT
  Age: 12 Year
  Sex: Female

DRUGS (3)
  1. PHENYTOIN. [Suspect]
     Active Substance: PHENYTOIN
     Indication: CRANIOCEREBRAL INJURY
     Dosage: LOADING DOSE
     Route: 042
     Dates: start: 20180204, end: 20180205
  2. MORPHINE [Concomitant]
     Active Substance: MORPHINE
     Route: 065
  3. MIDAZOLAM [Concomitant]
     Active Substance: MIDAZOLAM HYDROCHLORIDE
     Route: 065

REACTIONS (2)
  - Infusion site necrosis [Not Recovered/Not Resolved]
  - Purple glove syndrome [Not Recovered/Not Resolved]

NARRATIVE: CASE EVENT DATE: 20180205
